FAERS Safety Report 5530922-X (Version None)
Quarter: 2007Q4

REPORT INFORMATION
  Report Type: 
  Country: None (occurrence: None)
  Receive Date: 20071130
  Receipt Date: 20071119
  Transmission Date: 20080405
  Serious: Yes (Other)
  Sender: FDA-Public Use
  Company Number: US-PFIZER INC-2007046154

PATIENT
  Sex: Female

DRUGS (3)
  1. BEXTRA [Suspect]
     Indication: BACK PAIN
  2. BEXTRA [Suspect]
     Indication: ARTHRALGIA
  3. BEXTRA [Suspect]
     Indication: NECK PAIN

REACTIONS (1)
  - STEVENS-JOHNSON SYNDROME [None]
